FAERS Safety Report 13071499 (Version 1)
Quarter: 2016Q4

REPORT INFORMATION
  Report Type: Spontaneous
  Country: US (occurrence: US)
  Receive Date: 20161228
  Receipt Date: 20161228
  Transmission Date: 20170207
  Serious: Yes (Hospitalization)
  Sender: FDA-Public Use
  Company Number: None

PATIENT
  Age: 46 Year
  Sex: Female
  Weight: 108.4 kg

DRUGS (1)
  1. ERBITUX [Suspect]
     Active Substance: CETUXIMAB
     Dates: end: 20160901

REACTIONS (6)
  - Chills [None]
  - Abscess [None]
  - Pyrexia [None]
  - Seroma [None]
  - Headache [None]
  - Lymphoedema [None]

NARRATIVE: CASE EVENT DATE: 20161127
